FAERS Safety Report 19504811 (Version 1)
Quarter: 2021Q3

REPORT INFORMATION
  Report Type: Spontaneous
  Country: DE (occurrence: DE)
  Receive Date: 20210707
  Receipt Date: 20210707
  Transmission Date: 20211014
  Serious: Yes (Hospitalization)
  Sender: FDA-Public Use
  Company Number: DE-SA-2021SA213191

PATIENT
  Age: 75 Year
  Sex: Male
  Weight: 90 kg

DRUGS (8)
  1. GLIMEPIRIDE. [Suspect]
     Active Substance: GLIMEPIRIDE
     Dosage: 2 MG BID
     Route: 048
  2. INSULIN DETEMIR [Suspect]
     Active Substance: INSULIN DETEMIR
     Dosage: 300 IU, ACCORDING TO THE SCHEME
     Route: 058
  3. INSULIN HUMAN ISOPHANE [Suspect]
     Active Substance: INSULIN HUMAN
     Dosage: 300 IU,UNK
     Route: 058
  4. METAMIZOL [Concomitant]
     Active Substance: METAMIZOLE SODIUM
     Dosage: 125 MG, QID
     Route: 048
  5. ACETYLSALICYLIC ACID [Concomitant]
     Active Substance: ASPIRIN
     Dosage: 100 MG, QD
     Route: 048
  6. INSULIN ASPART [Suspect]
     Active Substance: INSULIN ASPART
     Dosage: 300 IU, ACCORDING TO THE SCHEME, AMPOULES
     Route: 058
  7. FOSTER [Concomitant]
     Active Substance: BECLOMETHASONE\FORMOTEROL
     Dosage: 2?0?0?0, METERED DOSE
     Route: 055
  8. RAMIPRIL. [Concomitant]
     Active Substance: RAMIPRIL
     Dosage: 5 MG QD
     Route: 048

REACTIONS (3)
  - Musculoskeletal pain [Unknown]
  - Medication error [Unknown]
  - Peripheral swelling [Unknown]
